FAERS Safety Report 15286101 (Version 1)
Quarter: 2018Q3

REPORT INFORMATION
  Report Type: Spontaneous
  Country: FR (occurrence: FR)
  Receive Date: 20180816
  Receipt Date: 20180816
  Transmission Date: 20181010
  Serious: Yes (Hospitalization, Other)
  Sender: FDA-Public Use
  Company Number: FR-PFIZER INC-2018320456

PATIENT
  Age: 81 Year
  Sex: Male

DRUGS (2)
  1. NEURONTIN [Suspect]
     Active Substance: GABAPENTIN
     Dosage: ONE CAPSULE OF 300 MG, 2X/DAY (IN THE MORNING AND IN THE EVENING)
     Dates: start: 2018, end: 2018
  2. NEURONTIN [Suspect]
     Active Substance: GABAPENTIN
     Dosage: ONE CAPSULE OF 300 MG, DAILY FOR 3 DAYS
     Dates: start: 2018, end: 2018

REACTIONS (14)
  - External ear inflammation [Unknown]
  - Dysgraphia [Unknown]
  - Balance disorder [Unknown]
  - Pruritus [Unknown]
  - Vasodilatation [Unknown]
  - Rash [Unknown]
  - Furuncle [Unknown]
  - Yellow skin [Unknown]
  - Gait disturbance [Unknown]
  - Sensory loss [Unknown]
  - Skin discolouration [Unknown]
  - Asthenia [Unknown]
  - Deafness unilateral [Unknown]
  - Coordination abnormal [Unknown]

NARRATIVE: CASE EVENT DATE: 2018
